FAERS Safety Report 8945362 (Version 2)
Quarter: 2013Q1

REPORT INFORMATION
  Report Type: Report from Study
  Country: JP (occurrence: JP)
  Receive Date: 20121205
  Receipt Date: 20130128
  Transmission Date: 20140127
  Serious: Yes (Other)
  Sender: FDA-Public Use
  Company Number: JP-009507513-1212JPN000209

PATIENT
  Age: 64 Year
  Sex: Male
  Weight: 74 kg

DRUGS (36)
  1. PEGINTRON [Suspect]
     Indication: CHRONIC HEPATITIS C
     Dosage: 1.35 MICROGRAM/KG/WEEK
     Route: 058
     Dates: start: 20120403, end: 20120514
  2. PEGINTRON [Suspect]
     Dosage: 1.08 MICROGRAM/KG/WEEK
     Route: 058
     Dates: start: 20120515, end: 20120911
  3. REBETOL [Suspect]
     Indication: CHRONIC HEPATITIS C
     Dosage: 800 MG, QD
     Route: 048
     Dates: start: 20120403, end: 20120416
  4. REBETOL [Suspect]
     Dosage: 400 MG, QD
     Route: 048
     Dates: start: 20120417, end: 20120514
  5. REBETOL [Suspect]
     Dosage: 200 MG, QD
     Route: 048
     Dates: start: 20120515, end: 20120910
  6. TELAVIC [Suspect]
     Indication: CHRONIC HEPATITIS C
     Dosage: 2250 MG,QD
     Route: 048
     Dates: start: 20120403, end: 20120430
  7. TELAVIC [Suspect]
     Dosage: 1500 MG, QD
     Route: 048
     Dates: start: 20120501, end: 20120625
  8. DOMPERIDONE [Concomitant]
     Indication: PROPHYLAXIS
     Dosage: 30 MG, QD, FORMULATION:POR
     Route: 048
     Dates: start: 20120403, end: 20120604
  9. LOXOPROFEN [Concomitant]
     Indication: PROPHYLAXIS
     Dosage: 60MG/DAY, PRN, FORMULATION:POR
     Route: 048
     Dates: start: 20120403, end: 20120508
  10. LOXOPROFEN [Concomitant]
     Dosage: 60 MG, PRN
     Route: 048
     Dates: start: 20120731
  11. LENDORMIN D [Concomitant]
     Indication: PROPHYLAXIS
     Dosage: 0.25 MG, QD, FORMULATION:POR
     Route: 048
     Dates: start: 20120403, end: 20120430
  12. LENDORMIN D [Concomitant]
     Dosage: 0.5 MG, QD
     Route: 048
     Dates: start: 20120501, end: 20121210
  13. RIKKUNSHI-TO [Concomitant]
     Indication: PROPHYLAXIS
     Dosage: 7.5 G, QD, FORMULATION:POR
     Route: 048
     Dates: start: 20120408
  14. ALLELOCK [Concomitant]
     Indication: PROPHYLAXIS
     Dosage: 10 MG, QD
     Route: 048
     Dates: start: 20120409, end: 20120424
  15. ALLELOCK [Concomitant]
     Dosage: 10 MG, QD
     Route: 048
     Dates: start: 20120529, end: 20120625
  16. MENTAX [Concomitant]
     Dosage: 10 ML, QD
     Route: 061
     Dates: start: 20120409, end: 20120412
  17. MENTAX [Concomitant]
     Dosage: 60 ML, QD
     Route: 061
     Dates: start: 20120413, end: 20120424
  18. MENTAX [Concomitant]
     Dosage: 50 ML, PRN
     Route: 061
     Dates: start: 20120626
  19. NERISONA [Concomitant]
     Dosage: 25 G, QD
     Route: 061
     Dates: start: 20120409, end: 20120412
  20. ZYLORIC [Concomitant]
     Dosage: 200 MG, QD
     Route: 048
     Dates: start: 20120411, end: 20120910
  21. ANTEBATE [Concomitant]
     Dosage: 30 MG, QD
     Route: 061
     Dates: start: 20120413, end: 20120424
  22. AMOBAN [Concomitant]
     Dosage: 7.5 MG, QD
     Route: 048
     Dates: start: 20120417
  23. KERATINAMIN [Concomitant]
     Dosage: 25 G, QD
     Route: 061
     Dates: start: 20120424
  24. KERATINAMIN [Concomitant]
     Dosage: 200 G, PRN
     Route: 061
     Dates: start: 20120522
  25. DEPAS [Concomitant]
     Indication: PROPHYLAXIS
     Dosage: 0.5 MG, QD
     Route: 048
     Dates: start: 20120508
  26. RHYTHMY [Concomitant]
     Indication: PROPHYLAXIS
     Dosage: 1 MG, QD
     Route: 048
     Dates: start: 20120515
  27. [THERAPY UNSPECIFIED] [Concomitant]
     Dosage: 75 G, QD (FORMULATION: EXT)
     Route: 051
     Dates: start: 20120529
  28. [THERAPY UNSPECIFIED] [Concomitant]
     Dosage: 300 G, QD (FORMULATION: EXT)
     Route: 051
     Dates: start: 20120605
  29. [THERAPY UNSPECIFIED] [Concomitant]
     Dosage: 300 G, PRN (FORMULATION: EXT)
     Route: 051
     Dates: start: 20120612
  30. PREDONINE [Concomitant]
     Dosage: 30 MG, QD
     Route: 048
     Dates: start: 20120529, end: 20120611
  31. PREDONINE [Concomitant]
     Dosage: 20 MG, QD
     Route: 048
     Dates: start: 20120612, end: 20120618
  32. PREDONINE [Concomitant]
     Dosage: 10 MG, QD
     Route: 048
     Dates: start: 20120619, end: 20120625
  33. PARIET [Concomitant]
     Dosage: 10 MG, QD, FORMULATION:POR
     Route: 048
     Dates: start: 20120529, end: 20120625
  34. PURSENNID (SENNOSIDES) [Concomitant]
     Dosage: 2.4 MG, QD
     Route: 048
     Dates: start: 20120605, end: 20120618
  35. MYSER (DIFLUPREDNATE) [Concomitant]
     Dosage: 100 G, PRN (FORMULATION: EXT)
     Route: 051
     Dates: start: 20120605
  36. VOALLA [Concomitant]
     Dosage: 100 G, PRN (FORMULATION: EXT)
     Route: 051
     Dates: start: 20120612

REACTIONS (1)
  - Drug eruption [Recovering/Resolving]
